FAERS Safety Report 6203815-2 (Version None)
Quarter: 2009Q2

REPORT INFORMATION
  Report Type: 
  Country: None (occurrence: None)
  Receive Date: 20090527
  Receipt Date: 20090515
  Transmission Date: 20091009
  Serious: Yes (Hospitalization)
  Sender: FDA-Public Use
  Company Number: PHHO2009US06162

PATIENT
  Sex: Male
  Weight: 57.3 kg

DRUGS (22)
  1. RAD 666 RAD+TAB [Suspect]
     Indication: NEOPLASM MALIGNANT
     Dosage: 5G QMWF
     Route: 048
     Dates: start: 20090129, end: 20090422
  2. BEVACIZUMAB [Suspect]
     Indication: NEOPLASM MALIGNANT
     Dosage: 10 MG/KG EVERY 2 WEEKS
     Dates: start: 20090129, end: 20090409
  3. PANITUMUMAB [Suspect]
     Indication: NEOPLASM MALIGNANT
     Dosage: 4.8 MG/KG EVERY 2 WEEKS
     Dates: start: 20090129, end: 20090409
  4. OXYCONTIN [Concomitant]
     Dosage: UNK
  5. LASIX [Concomitant]
     Indication: OEDEMA PERIPHERAL
     Dosage: UNK
  6. CARDURA [Concomitant]
  7. DEXAMETHASONE 4MG TAB [Concomitant]
     Dosage: UNK
  8. PRAVASTATIN [Concomitant]
  9. SENNA [Concomitant]
  10. PEPCID [Concomitant]
  11. FOSAMAX [Concomitant]
  12. AMLODIPINE [Concomitant]
  13. FEOSOL [Concomitant]
  14. FUROSEMIDE [Concomitant]
  15. LORAZEPAM [Concomitant]
  16. TANDEM [Concomitant]
  17. MIRALAX [Concomitant]
  18. METROCREAM [Concomitant]
  19. CETAPHIL [Concomitant]
  20. PHENERGAN [Concomitant]
  21. DOXYCYCLINE [Concomitant]
  22. CLONIDINE [Concomitant]

REACTIONS (25)
  - ACCELERATED HYPERTENSION [None]
  - ASTHENIA [None]
  - ATRIAL FIBRILLATION [None]
  - BACTERIAL INFECTION [None]
  - BLOOD PRESSURE DECREASED [None]
  - BRAIN NATRIURETIC PEPTIDE INCREASED [None]
  - CONNECTIVE TISSUE DISORDER [None]
  - DECREASED APPETITE [None]
  - DIZZINESS [None]
  - DYSPNOEA [None]
  - FATIGUE [None]
  - HEPATIC LESION [None]
  - HYPOPHAGIA [None]
  - HYPOXIA [None]
  - LUNG NEOPLASM [None]
  - MALIGNANT NEOPLASM PROGRESSION [None]
  - OEDEMA PERIPHERAL [None]
  - PAIN [None]
  - PALPITATIONS [None]
  - PLEURAL EFFUSION [None]
  - PRESYNCOPE [None]
  - PULMONARY OEDEMA [None]
  - SOMNOLENCE [None]
  - TACHYCARDIA [None]
  - WHITE BLOOD CELL DISORDER [None]
